FAERS Safety Report 8105712 (Version 2)
Quarter: 2013Q2

REPORT INFORMATION
  Report Type: Spontaneous
  Country: US (occurrence: US)
  Receive Date: 20110825
  Receipt Date: 20130415
  Transmission Date: 20140414
  Serious: Yes (Other)
  Sender: FDA-Public Use
  Company Number: US-BAYER-2011-075701

PATIENT
  Age: 21 Year
  Sex: Female
  Weight: 56.69 kg

DRUGS (4)
  1. YASMIN [Suspect]
  2. YAZ [Suspect]
  3. LEXAPRO [Concomitant]
     Dosage: 10 MG, QD
     Route: 048
  4. MULTIVITAMIN [Concomitant]

REACTIONS (2)
  - Thrombosis [None]
  - Retinal vein occlusion [None]
